FAERS Safety Report 12726343 (Version 2)
Quarter: 2016Q3

REPORT INFORMATION
  Report Type: Spontaneous
  Country: US (occurrence: US)
  Receive Date: 20160908
  Receipt Date: 20160915
  Transmission Date: 20161109
  Serious: Yes (Hospitalization, Other)
  Sender: FDA-Public Use
  Company Number: US-BAYER-2016-170788

PATIENT
  Age: 61 Year
  Sex: Female

DRUGS (2)
  1. BETASERON [Suspect]
     Active Substance: INTERFERON BETA-1B
     Indication: MULTIPLE SCLEROSIS
     Dosage: 0.3 MG, QOD
     Route: 058
     Dates: start: 201007
  2. BETASERON [Suspect]
     Active Substance: INTERFERON BETA-1B
     Indication: MULTIPLE SCLEROSIS
     Dosage: 0.3 MG, QOD
     Route: 058
     Dates: start: 2005

REACTIONS (8)
  - Muscle spasms [None]
  - Urticaria [None]
  - Multiple sclerosis relapse [Not Recovered/Not Resolved]
  - Hypoaesthesia [None]
  - Multiple sclerosis relapse [None]
  - Depression [None]
  - Delusion [None]
  - Stress [None]

NARRATIVE: CASE EVENT DATE: 2016
